FAERS Safety Report 7818663-7 (Version None)
Quarter: 2011Q4

REPORT INFORMATION
  Report Type: 
  Country: None (occurrence: None)
  Receive Date: 20111018
  Receipt Date: 20111010
  Transmission Date: 20120403
  Serious: Yes (Other)
  Sender: FDA-Public Use
  Company Number: US-BIOGENIDEC-2011BI034762

PATIENT
  Age: 48 Year
  Sex: Female

DRUGS (1)
  1. TYSABRI [Suspect]
     Indication: MULTIPLE SCLEROSIS
     Route: 042
     Dates: start: 20070821, end: 20110623

REACTIONS (5)
  - AMNESIA [None]
  - CONVULSION [None]
  - LOSS OF CONSCIOUSNESS [None]
  - DIARRHOEA [None]
  - ROAD TRAFFIC ACCIDENT [None]
